FAERS Safety Report 10654655 (Version 1)
Quarter: 2014Q4

REPORT INFORMATION
  Report Type: Report from Study
  Country: ES (occurrence: ES)
  Receive Date: 20141216
  Receipt Date: 20141216
  Transmission Date: 20150529
  Serious: Yes (Hospitalization, Other)
  Sender: FDA-Public Use
  Company Number: ES-JNJFOC-20141205489

PATIENT
  Sex: Male

DRUGS (8)
  1. XARELTO [Suspect]
     Active Substance: RIVAROXABAN
     Indication: DEEP VEIN THROMBOSIS
     Route: 048
     Dates: start: 20131126, end: 20131215
  2. XARELTO [Suspect]
     Active Substance: RIVAROXABAN
     Indication: EMBOLISM VENOUS
     Route: 048
     Dates: start: 20131215, end: 20140715
  3. XARELTO [Suspect]
     Active Substance: RIVAROXABAN
     Indication: DEEP VEIN THROMBOSIS
     Route: 048
     Dates: start: 20131215, end: 20140715
  4. ALLOPURINOL. [Concomitant]
     Active Substance: ALLOPURINOL
     Dosage: TOTAL DAILY DOSE
     Route: 065
     Dates: start: 2000
  5. XARELTO [Suspect]
     Active Substance: RIVAROXABAN
     Indication: EMBOLISM VENOUS
     Route: 048
     Dates: start: 20131126, end: 20131215
  6. SALICYLIC ACID. [Concomitant]
     Active Substance: SALICYLIC ACID
     Dosage: TOTAL DAILY DOSE
     Route: 065
     Dates: start: 20140920
  7. LISINOPRIL. [Concomitant]
     Active Substance: LISINOPRIL
     Dosage: TOTAL DAILY DOSE
     Route: 065
     Dates: start: 2010
  8. CEFIXIME. [Concomitant]
     Active Substance: CEFIXIME
     Dosage: 6 GR,TOTAL DAILY DOSE
     Route: 065
     Dates: start: 20140910, end: 20140920

REACTIONS (3)
  - Myocardial infarction [Recovered/Resolved]
  - Septic shock [Recovered/Resolved]
  - Neoplasm malignant [Not Recovered/Not Resolved]

NARRATIVE: CASE EVENT DATE: 20140715
